FAERS Safety Report 11926977 (Version 3)
Quarter: 2016Q1

REPORT INFORMATION
  Report Type: Other
  Country: US (occurrence: US)
  Receive Date: 20160119
  Receipt Date: 20160301
  Transmission Date: 20160526
  Serious: Yes (Hospitalization, Other)
  Sender: FDA-Public Use
  Company Number: US-SHIRE-US201600334

PATIENT
  Age: 40 Year
  Sex: Female

DRUGS (3)
  1. GATTEX [Suspect]
     Active Substance: TEDUGLUTIDE\WATER
     Indication: SHORT-BOWEL SYNDROME
     Dosage: UNK
     Route: 058
     Dates: start: 20131123, end: 201601
  2. LOVENOX [Concomitant]
     Active Substance: ENOXAPARIN SODIUM
     Indication: PRODUCT USED FOR UNKNOWN INDICATION
     Dosage: UNK
  3. COUMADIN [Concomitant]
     Active Substance: WARFARIN SODIUM
     Indication: PRODUCT USED FOR UNKNOWN INDICATION
     Dosage: UNK

REACTIONS (7)
  - Drug dose omission [Not Recovered/Not Resolved]
  - Abdominal pain [Recovered/Resolved]
  - Sepsis [Unknown]
  - Crohn^s disease [Not Recovered/Not Resolved]
  - Nausea [Recovered/Resolved]
  - Colitis ischaemic [Recovered/Resolved]
  - Malabsorption [Unknown]

NARRATIVE: CASE EVENT DATE: 201601
